FAERS Safety Report 15060186 (Version 1)
Quarter: 2018Q2

REPORT INFORMATION
  Report Type: Report from Study
  Country: US (occurrence: US)
  Receive Date: 20180625
  Receipt Date: 20180625
  Transmission Date: 20180711
  Serious: No
  Sender: FDA-Public Use
  Company Number: US-BLUE EARTH DIAGNOSTICS LIMITED-BED-000008-2018

PATIENT
  Age: 76 Year
  Sex: Male

DRUGS (1)
  1. AXUMIN [Suspect]
     Active Substance: FLUCICLOVINE F-18
     Indication: POSITRON EMISSION TOMOGRAM
     Dosage: 10.2 MCI, UNK
     Route: 065

REACTIONS (1)
  - False negative investigation result [Recovered/Resolved]
